FAERS Safety Report 7131675-4 (Version None)
Quarter: 2010Q4

REPORT INFORMATION
  Report Type: 
  Country: None (occurrence: None)
  Receive Date: 20101201
  Receipt Date: 20101124
  Transmission Date: 20110411
  Serious: Yes (Life-Threatening, Hospitalization)
  Sender: FDA-Public Use
  Company Number: FR-MERCK-1006FRA00071

PATIENT
  Age: 58 Year
  Sex: Female

DRUGS (11)
  1. ISENTRESS [Suspect]
     Indication: HIV INFECTION
     Route: 048
     Dates: start: 20100318, end: 20100514
  2. ISENTRESS [Suspect]
     Route: 048
     Dates: start: 20101021, end: 20101115
  3. LAMIVUDINE AND ZIDOVUDINE [Suspect]
     Indication: HIV INFECTION
     Route: 048
     Dates: start: 20100318, end: 20100514
  4. IRBESARTAN [Concomitant]
     Indication: HYPERTENSION
     Route: 048
     Dates: start: 20100424, end: 20101104
  5. PANTOPRAZOLE SODIUM [Concomitant]
     Indication: PROPHYLAXIS
     Route: 048
     Dates: start: 20071011
  6. REPAGLINIDE [Concomitant]
     Indication: TYPE 2 DIABETES MELLITUS
     Route: 048
  7. DARBEPOETIN ALFA [Concomitant]
     Indication: ANAEMIA
     Route: 058
  8. ABACAVIR SULFATE AND LAMIVUDINE [Suspect]
     Indication: HIV INFECTION
     Route: 048
     Dates: start: 20101021, end: 20101115
  9. ALISKIREN FUMARATE [Suspect]
     Indication: HYPERTENSION
     Route: 048
     Dates: start: 20101104
  10. RILMENIDINE PHOSPHATE [Concomitant]
     Indication: HYPERTENSION
     Route: 065
     Dates: start: 20101104, end: 20101110
  11. NICARDIPINE HYDROCHLORIDE [Concomitant]
     Indication: HYPERTENSION
     Route: 065
     Dates: start: 20101104, end: 20101108

REACTIONS (8)
  - FISTULA [None]
  - HYPOTENSION [None]
  - NEUTROPENIA [None]
  - PRURITUS [None]
  - RASH [None]
  - RASH MORBILLIFORM [None]
  - SEPSIS [None]
  - STAPHYLOCOCCAL SEPSIS [None]
